FAERS Safety Report 25074216 (Version 1)
Quarter: 2025Q1

REPORT INFORMATION
  Report Type: Spontaneous
  Country: US (occurrence: None)
  Receive Date: 20250313
  Receipt Date: 20250313
  Transmission Date: 20250408
  Serious: Yes (Other)
  Sender: FDA-CTU
  Company Number: None

PATIENT
  Sex: Female

DRUGS (6)
  1. MAYZENT [Suspect]
     Active Substance: SIPONIMOD
     Indication: Multiple sclerosis
     Dosage: FREQUENCY : DAILY;?
     Dates: start: 20190913
  2. AMPHET/DEXTR TAB 20MG [Concomitant]
  3. MODAFINIL TAB 200MG [Concomitant]
  4. MULTIPLE VIT TAB [Concomitant]
  5. RIZATRIPTAN TAB 10MG [Concomitant]
  6. WELLBUTRIN TAB XL 300MG [Concomitant]

REACTIONS (1)
  - Multiple sclerosis relapse [None]
